FAERS Safety Report 9731763 (Version 3)
Quarter: 2017Q3

REPORT INFORMATION
  Report Type: Report from Study
  Country: CO (occurrence: CO)
  Receive Date: 20131204
  Receipt Date: 20170830
  Transmission Date: 20171128
  Serious: Yes (Hospitalization, Other)
  Sender: FDA-Public Use
  Company Number: PHHY2013CO140962

PATIENT
  Age: 22 Year
  Sex: Female
  Weight: 62 kg

DRUGS (1)
  1. GILENYA [Suspect]
     Active Substance: FINGOLIMOD HYDROCHLORIDE
     Indication: MULTIPLE SCLEROSIS
     Dosage: 0.5 MG, QD
     Route: 048
     Dates: start: 20130105

REACTIONS (8)
  - Hypoaesthesia oral [Unknown]
  - Hypoaesthesia [Recovered/Resolved]
  - Cystitis [Unknown]
  - Balance disorder [Unknown]
  - Dizziness [Unknown]
  - Central nervous system lesion [Unknown]
  - Headache [Not Recovered/Not Resolved]
  - Muscular weakness [Recovering/Resolving]

NARRATIVE: CASE EVENT DATE: 20131114
